FAERS Safety Report 8969684 (Version 1)
Quarter: 2012Q4

REPORT INFORMATION
  Report Type: 
  Country: US (occurrence: US)
  Receive Date: 20121218
  Receipt Date: 20121218
  Transmission Date: 20130627
  Serious: No
  Sender: FDA-Public Use
  Company Number: US-BRISTOL-MYERS SQUIBB COMPANY-16563124

PATIENT
  Age: 33 Year
  Sex: Female

DRUGS (3)
  1. ABILIFY [Suspect]
     Dates: end: 2012
  2. EFFEXOR [Concomitant]
     Dosage: 1 df= 3 of 375mg
  3. KLONOPIN [Concomitant]

REACTIONS (1)
  - Myalgia [Unknown]
